FAERS Safety Report 9269560 (Version 5)
Quarter: 2013Q2

REPORT INFORMATION
  Report Type: Report from Study
  Country: JP (occurrence: JP)
  Receive Date: 20130503
  Receipt Date: 20130621
  Transmission Date: 20140414
  Serious: Yes (Hospitalization)
  Sender: FDA-Public Use
  Company Number: JP-ELI_LILLY_AND_COMPANY-JP201304007824

PATIENT
  Age: 48 Year
  Sex: Female
  Weight: 64.1 kg

DRUGS (3)
  1. DULOXETINE HYDROCHLORIDE [Suspect]
     Indication: FIBROMYALGIA
     Dates: start: 20130306, end: 20130417
  2. AMLODIPINE [Concomitant]
     Indication: HYPERTENSION
     Dosage: 5 MG, UNK
     Route: 048
     Dates: start: 20130122, end: 20130422
  3. CETIRIZINE HYDROCHLORIDE [Concomitant]
     Indication: DERMATITIS ALLERGIC
     Dosage: 10 MG, UNK
     Route: 048
     Dates: start: 20130122, end: 20130422

REACTIONS (1)
  - Liver disorder [Recovered/Resolved]
